FAERS Safety Report 6458683-0 (Version None)
Quarter: 2009Q4

REPORT INFORMATION
  Report Type: 
  Country: None (occurrence: None)
  Receive Date: 20091120
  Receipt Date: 20091106
  Transmission Date: 20100525
  Serious: Yes (Hospitalization)
  Sender: FDA-Public Use
  Company Number: CIP09003136

PATIENT
  Age: 72 Year
  Sex: Female

DRUGS (6)
  1. RISEDRONATE SODIUM [Suspect]
     Indication: OSTEOPOROSIS
     Dosage: 17.5 MG ONCE WEEKLY, ORAL
     Route: 048
     Dates: start: 20090610, end: 20090801
  2. PREDONINE [Suspect]
     Indication: RHEUMATOID ARTHRITIS
     Dosage: 15 MG, ORAL
     Route: 048
     Dates: start: 20090609
  3. BUFFERIN [Concomitant]
  4. PROCYLIN (BERAPROST SODIUM) [Concomitant]
  5. PLAVIX [Concomitant]
  6. ALDACTONE [Concomitant]

REACTIONS (3)
  - CONDITION AGGRAVATED [None]
  - DENTAL FISTULA [None]
  - TOOTH EXTRACTION [None]
